FAERS Safety Report 18400285 (Version 2)
Quarter: 2021Q4

REPORT INFORMATION
  Report Type: Spontaneous
  Country: US (occurrence: US)
  Receive Date: 20201019
  Receipt Date: 20211103
  Transmission Date: 20220303
  Serious: Yes (Other)
  Sender: FDA-Public Use
  Company Number: US-ALLERGAN-2035024US

PATIENT
  Sex: Female

DRUGS (2)
  1. VRAYLAR [Suspect]
     Active Substance: CARIPRAZINE
     Indication: Bipolar disorder
     Dosage: LOWER DOSE
     Route: 065
  2. VRAYLAR [Suspect]
     Active Substance: CARIPRAZINE
     Dosage: UNK
     Route: 065
     Dates: start: 20190516

REACTIONS (2)
  - Tardive dyskinesia [Recovered/Resolved]
  - Dystonia [Recovered/Resolved]

NARRATIVE: CASE EVENT DATE: 20190101
